FAERS Safety Report 8023879-3 (Version None)
Quarter: 2012Q1

REPORT INFORMATION
  Report Type: 
  Country: None (occurrence: None)
  Receive Date: 20120105
  Receipt Date: 20120103
  Transmission Date: 20120608
  Serious: No
  Sender: FDA-Public Use
  Company Number: US-PFIZER INC-2011091144

PATIENT
  Sex: Female
  Weight: 63 kg

DRUGS (4)
  1. ZYRTEC-D 12 HOUR [Concomitant]
     Indication: ASTHMA
     Dosage: UNK
  2. MONTELUKAST [Concomitant]
     Indication: ASTHMA
     Dosage: 10 MG, 2X/DAY
  3. LYRICA [Suspect]
     Indication: TRIGEMINAL NEURALGIA
     Dosage: 75 MG, 2X/DAY
     Route: 048
     Dates: start: 20101206
  4. FLOVENT [Concomitant]
     Indication: ASTHMA
     Dosage: UNK

REACTIONS (3)
  - PAIN [None]
  - WEIGHT INCREASED [None]
  - DYSPNOEA [None]
